FAERS Safety Report 8129805-0 (Version None)
Quarter: 2012Q1

REPORT INFORMATION
  Report Type: 
  Country: None (occurrence: None)
  Receive Date: 20120210
  Receipt Date: 20120210
  Transmission Date: 20120608
  Serious: Yes (Disabling)
  Sender: FDA-Public Use
  Company Number: None

PATIENT
  Sex: Female
  Weight: 71.033 kg

DRUGS (3)
  1. AVASTIN [Concomitant]
  2. ELOXATIN [Suspect]
     Indication: COLON CANCER
     Dosage: 200.0 MG
     Route: 041
     Dates: start: 20120206, end: 20120206
  3. ELOXATIN [Concomitant]
     Dosage: 50 MG
     Route: 041
     Dates: start: 20120206, end: 20120206

REACTIONS (7)
  - THROAT TIGHTNESS [None]
  - DRUG HYPERSENSITIVITY [None]
  - NEUROPATHY PERIPHERAL [None]
  - BLOOD PRESSURE INCREASED [None]
  - SLOW SPEECH [None]
  - DYSPHAGIA [None]
  - MUSCULOSKELETAL STIFFNESS [None]
